FAERS Safety Report 14786625 (Version 1)
Quarter: 2018Q2

REPORT INFORMATION
  Report Type: Spontaneous
  Country: US (occurrence: US)
  Receive Date: 20180420
  Receipt Date: 20180420
  Transmission Date: 20180711
  Serious: No
  Sender: FDA-Public Use
  Company Number: US-SA-2018SA086496

PATIENT
  Age: 54 Year
  Sex: Female

DRUGS (2)
  1. PROZAC [Concomitant]
     Active Substance: FLUOXETINE HYDROCHLORIDE
     Indication: EYE DISORDER
     Route: 065
     Dates: start: 2015
  2. KEVZARA [Suspect]
     Active Substance: SARILUMAB
     Indication: RHEUMATOID ARTHRITIS
     Route: 058
     Dates: start: 20180318, end: 20180318

REACTIONS (10)
  - Urinary tract infection [Recovered/Resolved]
  - Unevaluable event [Unknown]
  - Anger [Recovered/Resolved]
  - Disturbance in attention [Not Recovered/Not Resolved]
  - Mania [Not Recovered/Not Resolved]
  - Irritability [Recovered/Resolved]
  - Hormone level abnormal [Recovered/Resolved]
  - Muscle spasms [Recovering/Resolving]
  - Bladder disorder [Recovered/Resolved]
  - Tremor [Not Recovered/Not Resolved]

NARRATIVE: CASE EVENT DATE: 20180318
